FAERS Safety Report 7369106-1 (Version None)
Quarter: 2011Q1

REPORT INFORMATION
  Report Type: 
  Country: None (occurrence: None)
  Receive Date: 20110323
  Receipt Date: 20110317
  Transmission Date: 20110831
  Serious: Yes (Life-Threatening, Hospitalization, Other)
  Sender: FDA-Public Use
  Company Number: JP-ROCHE-662277

PATIENT
  Sex: Male
  Weight: 62.1 kg

DRUGS (29)
  1. TOCILIZUMAB [Suspect]
     Route: 041
     Dates: start: 20091127, end: 20100723
  2. TOCILIZUMAB [Suspect]
     Route: 041
     Dates: start: 20100910
  3. TANATRIL [Concomitant]
     Route: 048
     Dates: start: 20071004
  4. TOCILIZUMAB [Suspect]
     Route: 041
     Dates: start: 20090903, end: 20090903
  5. GARENOXACIN MESILATE [Suspect]
     Dosage: DRUG REPORTED AS: GENINAX
     Route: 048
  6. INDOMETHACIN SODIUM [Concomitant]
     Dosage: FORM: SUSTAINED RELEASE CAPSULE DRUG REPORTED AS: INTEBAN SP(INDOMETACIN)
     Route: 048
     Dates: start: 20090422
  7. ZETIA [Concomitant]
     Route: 048
     Dates: start: 20090903
  8. TOCILIZUMAB [Suspect]
     Indication: RHEUMATOID ARTHRITIS
     Route: 041
     Dates: start: 20090612, end: 20090612
  9. TOCILIZUMAB [Suspect]
     Route: 041
     Dates: start: 20090710, end: 20090710
  10. PREDNISOLONE [Suspect]
     Route: 048
     Dates: start: 20090711
  11. INDOMETHACIN SODIUM [Concomitant]
     Dosage: DOSE FORM: SUSTAINED RELEASE CAPSULE
     Route: 048
     Dates: start: 20071004
  12. BENET [Concomitant]
     Dosage: DRUG REPORTED AS: BENET(SODIUM RISEDRONATE HYDRATE)
     Route: 048
     Dates: start: 20090422
  13. BASEN [Concomitant]
     Route: 048
     Dates: start: 20080229
  14. FASTIC [Concomitant]
     Route: 048
     Dates: start: 20080229
  15. OMEPRAL [Concomitant]
     Route: 048
     Dates: start: 20071004
  16. TANATRIL [Concomitant]
     Dosage: DRUG REPORTED AS: TANATRIL(IMIDAPRIL HYDROCHLORIDE)
     Route: 048
     Dates: start: 20090422
  17. TOCILIZUMAB [Suspect]
     Route: 041
     Dates: start: 20091030, end: 20091030
  18. PREDNISOLONE [Suspect]
     Indication: RHEUMATOID ARTHRITIS
     Dosage: DOSE FORM: PERORAL AGENT
     Route: 048
     Dates: start: 20071004, end: 20090519
  19. BREDININ [Suspect]
     Indication: RHEUMATOID ARTHRITIS
     Route: 048
     Dates: start: 20100219
  20. PREDNISOLONE [Suspect]
     Route: 048
     Dates: start: 20090520, end: 20090710
  21. TAKEPRON [Concomitant]
     Route: 048
     Dates: start: 20090422
  22. ASPIRIN [Concomitant]
     Dosage: DOSE FORM: ENTERIC COATING DRUG
     Route: 048
     Dates: start: 20071004
  23. AUROTHIOMALATE [Concomitant]
     Dosage: DRUG: SHIOSOL(SODIUM AUROTHIOMALATE)
     Route: 030
     Dates: start: 20100219
  24. TOCILIZUMAB [Suspect]
     Route: 041
     Dates: start: 20091002, end: 20091002
  25. BENET [Concomitant]
     Route: 048
     Dates: start: 20071004
  26. BASEN [Concomitant]
     Dosage: DRUG REPORTED AS: BASEN OD(VOGLIBOSE)
     Route: 048
     Dates: start: 20090422
  27. AMLODIPINE [Concomitant]
     Dosage: DRUG REPORTED AS: AMLODIN OD(AMLODIPINE BESILATE)
     Route: 048
     Dates: start: 20071004
  28. TOCILIZUMAB [Suspect]
     Route: 041
     Dates: start: 20090807, end: 20090807
  29. ALLEGRA [Concomitant]
     Dosage: DRUG REPORTED AS: ALLEGRA(FEXOFENADINE HYDROCHLORIDE)
     Route: 048
     Dates: start: 20090422

REACTIONS (5)
  - HYPERTRIGLYCERIDAEMIA [None]
  - CELLULITIS [None]
  - PNEUMONIA [None]
  - HYPERCHOLESTEROLAEMIA [None]
  - DIABETES MELLITUS [None]
